FAERS Safety Report 15695478 (Version 1)
Quarter: 2018Q4

REPORT INFORMATION
  Report Type: Spontaneous
  Country: FR (occurrence: FR)
  Receive Date: 20181206
  Receipt Date: 20181206
  Transmission Date: 20190205
  Serious: Yes (Other)
  Sender: FDA-Public Use
  Company Number: FR-PROVELL PHARMACEUTICALS-2059768

PATIENT
  Age: 62 Year
  Sex: Female

DRUGS (1)
  1. EUTHYROX [Suspect]
     Active Substance: LEVOTHYROXINE SODIUM
     Indication: POST PROCEDURAL HYPOTHYROIDISM
     Dates: start: 201703

REACTIONS (38)
  - Vertigo [None]
  - Affective disorder [None]
  - Hypothyroidism [None]
  - Hypertension [None]
  - Exophthalmos [None]
  - Depression [None]
  - Vascular insufficiency [None]
  - Urine albumin/creatinine ratio increased [None]
  - Pruritus [None]
  - Haematocrit increased [None]
  - Blood triglycerides increased [Not Recovered/Not Resolved]
  - Headache [None]
  - Mean cell haemoglobin concentration decreased [None]
  - Blood glucose increased [Not Recovered/Not Resolved]
  - Gamma-glutamyltransferase increased [Not Recovered/Not Resolved]
  - Breast cancer [None]
  - Pain [None]
  - Weight increased [None]
  - Alopecia [None]
  - Arrhythmia [None]
  - Fear [None]
  - Tremor [None]
  - Myalgia [None]
  - Eye disorder [None]
  - Insomnia [None]
  - Fatigue [None]
  - Impaired driving ability [None]
  - Crying [None]
  - Haemoglobin increased [None]
  - Alanine aminotransferase increased [Not Recovered/Not Resolved]
  - Thyroxine free increased [None]
  - Hyperthyroidism [None]
  - Arthralgia [None]
  - Anxiety [None]
  - Disturbance in attention [None]
  - Monocyte count increased [Not Recovered/Not Resolved]
  - Mean cell volume increased [Not Recovered/Not Resolved]
  - Urticaria [None]

NARRATIVE: CASE EVENT DATE: 2017
